FAERS Safety Report 5940758-3 (Version None)
Quarter: 2008Q4

REPORT INFORMATION
  Report Type: 
  Country: None (occurrence: None)
  Receive Date: 20081103
  Receipt Date: 20081103
  Transmission Date: 20090506
  Serious: Yes (Hospitalization)
  Sender: FDA-Public Use
  Company Number: None

PATIENT
  Age: 78 Year
  Sex: Male

DRUGS (1)
  1. SULFAMETHOXAZOLE AND TRIMETHOPRIM [Suspect]
     Indication: URINARY TRACT INFECTION
     Dosage: 1600/320 MG BID PO
     Route: 048
     Dates: start: 20080519, end: 20080525

REACTIONS (3)
  - DEHYDRATION [None]
  - HYPERKALAEMIA [None]
  - RENAL FAILURE ACUTE [None]
